FAERS Safety Report 22308694 (Version 1)
Quarter: 2023Q2

REPORT INFORMATION
  Report Type: Spontaneous
  Country: US (occurrence: None)
  Receive Date: 20230511
  Receipt Date: 20230511
  Transmission Date: 20230721
  Serious: No
  Sender: FDA-Public Use
  Company Number: US-ROCHE-3258447

PATIENT
  Sex: Male

DRUGS (3)
  1. OCREVUS [Suspect]
     Active Substance: OCRELIZUMAB
     Indication: Relapsing multiple sclerosis
     Route: 065
     Dates: start: 2021
  2. TIZANIDINE [Concomitant]
     Active Substance: TIZANIDINE
  3. PREGABALIN [Concomitant]
     Active Substance: PREGABALIN

REACTIONS (3)
  - Impaired healing [Unknown]
  - Fall [Unknown]
  - Bone contusion [Not Recovered/Not Resolved]
